FAERS Safety Report 4641739-2 (Version None)
Quarter: 2005Q2

REPORT INFORMATION
  Report Type: 
  Country: None (occurrence: None)
  Receive Date: 20050420
  Receipt Date: 20050407
  Transmission Date: 20051028
  Serious: Yes (Other)
  Sender: FDA-Public Use
  Company Number: 2005058387

PATIENT
  Age: 51 Year
  Sex: Male
  Weight: 95.2554 kg

DRUGS (4)
  1. BEXTRA [Suspect]
     Indication: ARTHRITIS
     Dosage: (4 OR 5 TIMES DAILY), ORAL
     Route: 048
  2. OXYCODONE HCL [Concomitant]
  3. SERTRALINE HCL [Concomitant]
  4. ALPRAZOLAM [Concomitant]

REACTIONS (7)
  - ACNE [None]
  - DERMATITIS [None]
  - FOLLICULITIS [None]
  - GENITAL DISORDER MALE [None]
  - LICHEN PLANUS [None]
  - PURPURA [None]
  - STEVENS-JOHNSON SYNDROME [None]
